FAERS Safety Report 7516315-4 (Version None)
Quarter: 2011Q2

REPORT INFORMATION
  Report Type: 
  Country: None (occurrence: None)
  Receive Date: 20110601
  Receipt Date: 20110527
  Transmission Date: 20111010
  Serious: Yes (Hospitalization)
  Sender: FDA-Public Use
  Company Number: GR-ABBOTT-11P-066-0725731-00

PATIENT
  Age: 80 Year
  Sex: Female

DRUGS (1)
  1. CLARITHROMYCIN [Suspect]
     Indication: TOOTH ABSCESS
     Route: 048

REACTIONS (4)
  - DIARRHOEA [None]
  - SYNCOPE [None]
  - MEGACOLON [None]
  - CLOSTRIDIAL INFECTION [None]
